FAERS Safety Report 18279353 (Version 2)
Quarter: 2020Q3

REPORT INFORMATION
  Report Type: Spontaneous
  Country: DE (occurrence: DE)
  Receive Date: 20200917
  Receipt Date: 20200923
  Transmission Date: 20201103
  Serious: Yes (Life-Threatening, Hospitalization)
  Sender: FDA-Public Use
  Company Number: DE-MYLANLABS-MK-6024372

PATIENT
  Age: 40 Year
  Sex: Male

DRUGS (12)
  1. RISPERIDONE. [Interacting]
     Active Substance: RISPERIDONE
     Indication: PARKINSONISM
     Dosage: 3 MILLIGRAM, QD
     Route: 065
  2. RISPERIDONE. [Interacting]
     Active Substance: RISPERIDONE
     Dosage: 8 MILLIGRAM, QD
     Route: 048
  3. BIPERIDEN [Concomitant]
     Active Substance: BIPERIDEN
     Indication: PSYCHOTIC DISORDER
  4. MIRTAZAPINE. [Interacting]
     Active Substance: MIRTAZAPINE
     Indication: PARKINSONISM
  5. MIRTAZAPINE. [Interacting]
     Active Substance: MIRTAZAPINE
     Indication: PSYCHOTIC DISORDER
  6. BIPERIDEN [Concomitant]
     Active Substance: BIPERIDEN
     Indication: MAJOR DEPRESSION
  7. MIRTAZAPINE. [Interacting]
     Active Substance: MIRTAZAPINE
     Indication: MAJOR DEPRESSION
     Dosage: 60 MILLIGRAM, QD
     Route: 065
  8. BIPERIDEN [Concomitant]
     Active Substance: BIPERIDEN
     Indication: SCHIZOPHRENIA
     Dosage: 2 MILLIGRAM, QD
  9. BIPERIDEN [Concomitant]
     Active Substance: BIPERIDEN
     Indication: PARKINSONISM
  10. MIRTAZAPINE. [Suspect]
     Active Substance: MIRTAZAPINE
     Indication: DEPRESSION
     Dosage: 45 MILLIGRAM, QD
     Route: 048
  11. MIRTAZAPINE. [Interacting]
     Active Substance: MIRTAZAPINE
     Indication: SCHIZOPHRENIA
  12. RISPERIDONE. [Interacting]
     Active Substance: RISPERIDONE
     Indication: SCHIZOPHRENIA
     Dosage: 7 MILLIGRAM, QD
     Route: 065

REACTIONS (5)
  - Pulmonary embolism [Recovered/Resolved]
  - Extrapyramidal disorder [Unknown]
  - Parkinsonism [Unknown]
  - Drug interaction [Recovered/Resolved]
  - Rhabdomyolysis [Recovered/Resolved]
